FAERS Safety Report 23344125 (Version 1)
Quarter: 2023Q4

REPORT INFORMATION
  Report Type: Spontaneous
  Country: JP (occurrence: JP)
  Receive Date: 20231227
  Receipt Date: 20231227
  Transmission Date: 20240110
  Serious: Yes (Other)
  Sender: FDA-Public Use
  Company Number: JP-ONO-2023JP031861

PATIENT

DRUGS (7)
  1. OPDIVO [Suspect]
     Active Substance: NIVOLUMAB
     Indication: Gastric cancer
     Dosage: UNK
     Route: 041
  2. OPDIVO [Suspect]
     Active Substance: NIVOLUMAB
     Dosage: 2ND COURSE
     Route: 041
  3. OPDIVO [Suspect]
     Active Substance: NIVOLUMAB
     Dosage: 3RD COURSE
     Route: 041
  4. OXALIPLATIN [Concomitant]
     Active Substance: OXALIPLATIN
     Indication: Gastric cancer
     Dosage: UNK
  5. OXALIPLATIN [Concomitant]
     Active Substance: OXALIPLATIN
     Dosage: UNK
  6. GIMERACIL\OTERACIL\TEGAFUR [Concomitant]
     Active Substance: GIMERACIL\OTERACIL POTASSIUM\TEGAFUR
     Indication: Gastric cancer
     Dosage: UNK
  7. GIMERACIL\OTERACIL\TEGAFUR [Concomitant]
     Active Substance: GIMERACIL\OTERACIL POTASSIUM\TEGAFUR
     Dosage: UNK

REACTIONS (1)
  - Erythema multiforme [Recovering/Resolving]
